FAERS Safety Report 4550364-3 (Version None)
Quarter: 2005Q1

REPORT INFORMATION
  Report Type: 
  Country: None (occurrence: None)
  Receive Date: 20050111
  Receipt Date: 20050111
  Transmission Date: 20050727
  Serious: Yes (Other)
  Sender: FDA-Public Use
  Company Number: None

PATIENT
  Sex: Female

DRUGS (1)
  1. ALPRAZOLAM [Suspect]
     Indication: ANXIETY DISORDER
     Dosage: 1 MG QID  PO
     Route: 048
     Dates: start: 20040401, end: 20041101

REACTIONS (2)
  - NAUSEA [None]
  - VOMITING [None]
